FAERS Safety Report 7668986-X (Version None)
Quarter: 2011Q3

REPORT INFORMATION
  Report Type: 
  Country: None (occurrence: None)
  Receive Date: 20110808
  Receipt Date: 20110727
  Transmission Date: 20111222
  Serious: Yes (Hospitalization)
  Sender: FDA-Public Use
  Company Number: DE-GLAXOSMITHKLINE-B0737572A

PATIENT
  Sex: Male

DRUGS (6)
  1. CHLORAMBUCIL [Suspect]
     Indication: CHRONIC LYMPHOCYTIC LEUKAEMIA
     Dosage: 42MG CYCLIC
     Route: 048
     Dates: start: 20100812, end: 20100927
  2. RITUXIMAB [Suspect]
     Indication: CHRONIC LYMPHOCYTIC LEUKAEMIA
     Dosage: 147MG MONTHLY
     Route: 042
     Dates: start: 20100812, end: 20100927
  3. ALLOPURINOL [Concomitant]
     Dates: start: 20100811, end: 20100915
  4. MCP [Concomitant]
     Dates: start: 20100812, end: 20100915
  5. COTRIM DS [Concomitant]
     Dates: start: 20100816, end: 20100915
  6. EPOETIN ALFA [Concomitant]
     Dates: start: 20100826, end: 20100904

REACTIONS (1)
  - HERPES SIMPLEX [None]
